FAERS Safety Report 8545468-4 (Version None)
Quarter: 2012Q3

REPORT INFORMATION
  Report Type: 
  Country: None (occurrence: None)
  Receive Date: 20120727
  Receipt Date: 20120125
  Transmission Date: 20120928
  Serious: No
  Sender: FDA-Public Use
  Company Number: US-ASTRAZENECA-2011SE67741

PATIENT
  Age: 35 Year
  Sex: Female
  Weight: 69.9 kg

DRUGS (3)
  1. SEROQUEL [Suspect]
     Indication: SCHIZOPHRENIA
     Route: 048
     Dates: start: 20080101
  2. AMBIEN [Concomitant]
     Indication: INSOMNIA
  3. SEROQUEL [Suspect]
     Indication: BIPOLAR DISORDER
     Route: 048
     Dates: start: 20080101

REACTIONS (6)
  - MALAISE [None]
  - NAUSEA [None]
  - ASTHENIA [None]
  - DRUG DOSE OMISSION [None]
  - WITHDRAWAL SYNDROME [None]
  - VOMITING [None]
